FAERS Safety Report 24889110 (Version 2)
Quarter: 2025Q1

REPORT INFORMATION
  Report Type: Spontaneous
  Country: DE (occurrence: DE)
  Receive Date: 20250127
  Receipt Date: 20250128
  Transmission Date: 20250409
  Serious: Yes (Hospitalization, Other)
  Sender: CHEPLAPHARM
  Company Number: DE-CHEPLA-2024000989

PATIENT
  Age: 70 Year
  Sex: Male

DRUGS (2)
  1. VALGANCICLOVIR [Suspect]
     Active Substance: VALGANCICLOVIR
  2. SULFAMETHOXAZOLE\TRIMETHOPRIM [Suspect]
     Active Substance: SULFAMETHOXAZOLE\TRIMETHOPRIM

REACTIONS (10)
  - Myelodysplastic syndrome with single lineage dysplasia [Unknown]
  - Myelosuppression [Unknown]
  - Interstitial lung disease [Unknown]
  - Pneumocystis jirovecii pneumonia [Unknown]
  - Severe acute respiratory syndrome [Unknown]
  - Hypercalcaemia [Unknown]
  - Hypophosphataemia [Unknown]
  - Blood parathyroid hormone increased [Unknown]
  - COVID-19 [Recovered/Resolved]
  - Hyperparathyroidism tertiary [Unknown]
